FAERS Safety Report 5963944-5 (Version None)
Quarter: 2008Q4

REPORT INFORMATION
  Report Type: 
  Country: None (occurrence: None)
  Receive Date: 20081124
  Receipt Date: 20081118
  Transmission Date: 20090506
  Serious: Yes (Hospitalization)
  Sender: FDA-Public Use
  Company Number: DK-ABBOTT-08P-044-0488280-00

PATIENT
  Sex: Female
  Weight: 70 kg

DRUGS (3)
  1. HUMIRA [Suspect]
     Indication: PSORIATIC ARTHROPATHY
     Route: 058
     Dates: start: 20040919
  2. HUMIRA [Suspect]
  3. METHOTREXATE [Concomitant]
     Indication: RHEUMATOID ARTHRITIS
     Route: 030
     Dates: start: 20040304

REACTIONS (2)
  - FACIAL PARESIS [None]
  - NEUROBORRELIOSIS [None]
